FAERS Safety Report 16041431 (Version 1)
Quarter: 2019Q1

REPORT INFORMATION
  Report Type: Spontaneous
  Country: US (occurrence: US)
  Receive Date: 20190306
  Receipt Date: 20190306
  Transmission Date: 20190418
  Serious: No
  Sender: FDA-Public Use
  Company Number: US-AKORN PHARMACEUTICALS-2018AKN02041

PATIENT
  Age: 69 Year
  Sex: Male

DRUGS (2)
  1. FEROCON [Concomitant]
     Active Substance: FERROUS FUMARATE\FOLIC ACID\VITAMIN B COMPLEX
  2. MYORISAN [Suspect]
     Active Substance: ISOTRETINOIN
     Indication: ROSACEA
     Dosage: 20 MG, 1X/DAY
     Route: 048
     Dates: start: 20181115, end: 20181121

REACTIONS (4)
  - Rosacea [Recovering/Resolving]
  - Off label use [Recovered/Resolved]
  - Drug ineffective for unapproved indication [Recovered/Resolved]
  - Acne [Recovering/Resolving]

NARRATIVE: CASE EVENT DATE: 20181115
